FAERS Safety Report 9634820 (Version 1)
Quarter: 2013Q4

REPORT INFORMATION
  Report Type: Spontaneous
  Country: US (occurrence: US)
  Receive Date: 20131021
  Receipt Date: 20131021
  Transmission Date: 20140711
  Serious: Yes (Other)
  Sender: FDA-Public Use
  Company Number: US-SHIRE-ALL1-2013-06954

PATIENT
  Sex: 0

DRUGS (3)
  1. VYVANSE [Suspect]
     Indication: ATTENTION DEFICIT/HYPERACTIVITY DISORDER
     Dosage: UNK UNK, UNKNOWN
     Route: 048
  2. ADDERALL XR [Suspect]
     Indication: ATTENTION DEFICIT/HYPERACTIVITY DISORDER
     Dosage: UNK UNK, UNKNOWN
     Route: 048
  3. ADDERALL [Concomitant]
     Indication: ATTENTION DEFICIT/HYPERACTIVITY DISORDER
     Dosage: UNK UNK, UNKNOWN
     Route: 065

REACTIONS (9)
  - Heat stroke [Unknown]
  - Hyperthermia [Unknown]
  - Depression [Unknown]
  - Amnesia [Unknown]
  - Anhedonia [Unknown]
  - Feeling hot [Unknown]
  - Hot flush [Unknown]
  - Disturbance in attention [Unknown]
  - Hyperhidrosis [Unknown]
